FAERS Safety Report 15741368 (Version 1)
Quarter: 2018Q4

REPORT INFORMATION
  Report Type: Report from Study
  Country: FR (occurrence: FR)
  Receive Date: 20181219
  Receipt Date: 20181219
  Transmission Date: 20190205
  Serious: Yes (Death, Hospitalization, Other)
  Sender: FDA-Public Use
  Company Number: FR-JAZZ-2018-FR-009721

PATIENT

DRUGS (2)
  1. FOSCAVIR [Suspect]
     Active Substance: FOSCARNET SODIUM
     Indication: ENCEPHALITIS
     Dosage: UNK
     Dates: start: 20180223, end: 20180308
  2. DEFITELIO [Suspect]
     Active Substance: DEFIBROTIDE SODIUM
     Indication: VENOOCCLUSIVE DISEASE
     Dosage: 25 MG/KG, QD
     Dates: start: 20170830, end: 20170924

REACTIONS (7)
  - Encephalitis [Fatal]
  - Epstein-Barr virus associated lymphoproliferative disorder [Unknown]
  - Diabetes insipidus [Unknown]
  - Cytomegalovirus infection [Fatal]
  - Febrile neutropenia [Unknown]
  - Hypothermia [Unknown]
  - Pancytopenia [Unknown]

NARRATIVE: CASE EVENT DATE: 20171117
